FAERS Safety Report 7402683-0 (Version None)
Quarter: 2011Q2

REPORT INFORMATION
  Report Type: 
  Country: None (occurrence: None)
  Receive Date: 20110408
  Receipt Date: 20110330
  Transmission Date: 20111010
  Serious: Yes (Hospitalization, Other)
  Sender: FDA-Public Use
  Company Number: JP-ASTRAZENECA-2011SE06665

PATIENT
  Age: 67 Year
  Sex: Male
  Weight: 55 kg

DRUGS (10)
  1. SYMBICORT [Suspect]
     Indication: CHRONIC OBSTRUCTIVE PULMONARY DISEASE
     Dosage: 160/4.5 MCG X 2 INHALATION/DAY
     Route: 055
     Dates: start: 20100929, end: 20110330
  2. SPIRIVA [Suspect]
     Indication: CHRONIC OBSTRUCTIVE PULMONARY DISEASE
     Route: 055
     Dates: start: 20091111
  3. CALONAL [Concomitant]
     Indication: HEADACHE
     Route: 048
     Dates: start: 20110126, end: 20110209
  4. KETAS [Concomitant]
     Indication: CEREBRAL INFARCTION
     Route: 048
     Dates: start: 20091021
  5. SULTANOL [Suspect]
     Indication: CHRONIC OBSTRUCTIVE PULMONARY DISEASE
     Route: 055
     Dates: start: 20100908, end: 20110129
  6. TANATRIL [Concomitant]
     Indication: HYPERTENSION
     Route: 048
     Dates: start: 20011106
  7. MUCODYNE [Concomitant]
     Indication: SPUTUM RETENTION
     Route: 048
     Dates: start: 20100728
  8. PARIET [Concomitant]
     Indication: DYSPEPSIA
     Route: 048
     Dates: start: 20101111
  9. AMLODIN [Concomitant]
     Indication: HYPERTENSION
     Route: 048
     Dates: start: 20011204
  10. ZYLORIC [Concomitant]
     Indication: HYPERURICAEMIA
     Route: 048
     Dates: start: 20100908

REACTIONS (2)
  - THORACIC VERTEBRAL FRACTURE [None]
  - LOSS OF CONSCIOUSNESS [None]
